FAERS Safety Report 6120417-7 (Version None)
Quarter: 2009Q1

REPORT INFORMATION
  Report Type: 
  Country: None (occurrence: None)
  Receive Date: 20090317
  Receipt Date: 20090304
  Transmission Date: 20090719
  Serious: Yes (Hospitalization, Other)
  Sender: FDA-Public Use
  Company Number: PHHY2009FR06290

PATIENT
  Sex: Female

DRUGS (7)
  1. GLEEVEC [Suspect]
     Indication: GASTROINTESTINAL STROMAL TUMOUR
     Dosage: 400 MG DAILY
     Route: 048
     Dates: start: 20040501
  2. GLEEVEC [Suspect]
     Dosage: 800 MG, QD
     Route: 048
     Dates: start: 20090101
  3. FUROSEMIDE [Concomitant]
     Route: 048
  4. ESOMEPRAZOLE [Concomitant]
     Route: 048
  5. DOMPERIDONE [Concomitant]
     Route: 048
  6. AROMASIN [Concomitant]
     Route: 048
  7. CARBOSYLANE [Concomitant]
     Route: 048

REACTIONS (10)
  - BURNING SENSATION [None]
  - ERYTHEMA [None]
  - ERYTHROMELALGIA [None]
  - EXTREMITY NECROSIS [None]
  - FEELING HOT [None]
  - GASTROINTESTINAL STROMAL TUMOUR [None]
  - HEPATIC NEOPLASM [None]
  - PAIN IN EXTREMITY [None]
  - PARANEOPLASTIC SYNDROME [None]
  - SLEEP DISORDER [None]
